FAERS Safety Report 7320437-0 (Version None)
Quarter: 2011Q1

REPORT INFORMATION
  Report Type: 
  Country: None (occurrence: None)
  Receive Date: 20110228
  Receipt Date: 20110221
  Transmission Date: 20110831
  Serious: Yes (Other)
  Sender: FDA-Public Use
  Company Number: A0915366A

PATIENT
  Sex: Female
  Weight: 61 kg

DRUGS (3)
  1. SINGULAIR [Concomitant]
     Dosage: 1TAB AT NIGHT
     Dates: start: 20110219, end: 20110220
  2. BAMIFIX [Concomitant]
     Dosage: 600MG TWICE PER DAY
     Dates: start: 20110219, end: 20110220
  3. SERETIDE [Suspect]
     Indication: ASTHMA
     Dosage: 1PUFF TWICE PER DAY
     Route: 065
     Dates: start: 20110219, end: 20110219

REACTIONS (8)
  - ASTHMA [None]
  - CHEST PAIN [None]
  - THROAT TIGHTNESS [None]
  - SPEECH DISORDER [None]
  - TONGUE OEDEMA [None]
  - DYSPNOEA [None]
  - FACE OEDEMA [None]
  - LOCALISED OEDEMA [None]
